FAERS Safety Report 8941952 (Version 1)
Quarter: 2012Q4

REPORT INFORMATION
  Report Type: Report from Study
  Country: CA (occurrence: CA)
  Receive Date: 20121203
  Receipt Date: 20121203
  Transmission Date: 20130627
  Serious: Yes (Hospitalization)
  Sender: FDA-Public Use
  Company Number: CA-JNJFOC-20121111650

PATIENT
  Age: 27 Year
  Sex: Female
  Weight: 62 kg

DRUGS (7)
  1. REMICADE [Suspect]
     Indication: RHEUMATOID ARTHRITIS
     Route: 042
     Dates: start: 20111025
  2. LITHIUM CARBONATE [Concomitant]
     Route: 065
  3. SEROQUEL [Concomitant]
     Route: 065
  4. PLAQUINOL [Concomitant]
     Route: 065
  5. THYROID [Concomitant]
     Route: 065
  6. LEFLUNOMIDE [Concomitant]
     Route: 065
  7. ALL OTHER THERAPEUTIC PRODUCTS [Concomitant]
     Route: 065

REACTIONS (1)
  - Mental disorder [Unknown]
